FAERS Safety Report 10005102 (Version 1)
Quarter: 2014Q1

REPORT INFORMATION
  Report Type: Spontaneous
  Country: US (occurrence: US)
  Receive Date: 20140312
  Receipt Date: 20140312
  Transmission Date: 20141002
  Serious: No
  Sender: FDA-Public Use
  Company Number: US-B.I. PHARMACEUTICALS,INC./RIDGEFIELD-2014-BI-09682BP

PATIENT
  Sex: Female
  Weight: 43 kg

DRUGS (10)
  1. SPIRIVA [Suspect]
     Indication: CHRONIC OBSTRUCTIVE PULMONARY DISEASE
     Dosage: 18 MCG
     Route: 048
  2. ALBUTEROL NEBULIZER [Concomitant]
     Route: 055
  3. COUMADIN [Concomitant]
     Dosage: 2.5 MG
     Route: 048
  4. METOPROLOL [Concomitant]
     Dosage: 25 MG
     Route: 048
  5. LEVOTHYROXINE [Concomitant]
     Dosage: 100 MG
     Route: 048
  6. SIMVASTATIN [Concomitant]
     Dosage: 20 MG
     Route: 048
  7. OMEPRAZOLE [Concomitant]
     Dosage: 20 MG
     Route: 048
  8. FLUOXETINE [Concomitant]
     Dosage: 10 MG
     Route: 048
  9. FUROSEMIDE [Concomitant]
     Dosage: 20 MG
     Route: 048
  10. ALBUTEROL MDI [Concomitant]
     Route: 065

REACTIONS (1)
  - Dyspnoea [Not Recovered/Not Resolved]
